FAERS Safety Report 22299374 (Version 1)
Quarter: 2023Q2

REPORT INFORMATION
  Report Type: Spontaneous
  Country: US (occurrence: None)
  Receive Date: 20230508
  Receipt Date: 20230508
  Transmission Date: 20230721
  Serious: Yes (Life-Threatening)
  Sender: FDA-Public Use
  Company Number: None

PATIENT
  Age: 73 Year
  Sex: Male

DRUGS (1)
  1. ICATIBANT [Suspect]
     Active Substance: ICATIBANT ACETATE
     Dosage: 30MG PRN SUBCUTANEOUS
     Route: 058

REACTIONS (1)
  - Laryngeal disorder [None]

NARRATIVE: CASE EVENT DATE: 20230409
